FAERS Safety Report 9676373 (Version 1)
Quarter: 2013Q4

REPORT INFORMATION
  Report Type: Report from Study
  Country: US (occurrence: US)
  Receive Date: 20131107
  Receipt Date: 20131107
  Transmission Date: 20140711
  Serious: Yes (Hospitalization, Other)
  Sender: FDA-Public Use
  Company Number: US-ROCHE-1296855

PATIENT
  Sex: 0

DRUGS (2)
  1. RIBAVIRIN [Suspect]
     Indication: HEPATITIS C
     Dosage: 800-1200 MG
     Route: 065
  2. PEGINTERFERON ALFA-2B [Suspect]
     Indication: HEPATITIS C
     Route: 065

REACTIONS (5)
  - Infection [Unknown]
  - Pancytopenia [Unknown]
  - Hypovolaemia [Unknown]
  - Chest pain [Unknown]
  - Hepatocellular carcinoma [Unknown]
